APPROVED DRUG PRODUCT: PENBRITIN-S
Active Ingredient: AMPICILLIN SODIUM
Strength: EQ 1GM BASE/VIAL **Federal Register determination that product was not discontinued or withdrawn for safety or effectiveness reasons**
Dosage Form/Route: INJECTABLE;INJECTION
Application: N050072 | Product #004
Applicant: WYETH AYERST LABORATORIES
Approved: Approved Prior to Jan 1, 1982 | RLD: Yes | RS: No | Type: DISCN